FAERS Safety Report 18413484 (Version 3)
Quarter: 2020Q4

REPORT INFORMATION
  Report Type: Spontaneous
  Country: SV (occurrence: SV)
  Receive Date: 20201021
  Receipt Date: 20201117
  Transmission Date: 20210114
  Serious: Yes (Death, Other)
  Sender: FDA-Public Use
  Company Number: SV-ROCHE-2699780

PATIENT
  Age: 51 Year
  Sex: Male

DRUGS (23)
  1. ETOPOSIDE. [Concomitant]
     Active Substance: ETOPOSIDE
     Indication: B-CELL LYMPHOMA
     Dosage: 4 CYCLES
     Route: 042
     Dates: start: 20171207, end: 20180306
  2. ETOPOSIDE. [Concomitant]
     Active Substance: ETOPOSIDE
     Indication: AUTOLOGOUS HAEMATOPOIETIC STEM CELL TRANSPLANT
     Route: 042
     Dates: start: 20180901
  3. LENALIDOMIDE [Concomitant]
     Active Substance: LENALIDOMIDE
     Indication: B-CELL LYMPHOMA
     Dosage: FOR 21 DAYS
     Route: 048
     Dates: start: 201902
  4. DEXAMETHASONE. [Concomitant]
     Active Substance: DEXAMETHASONE
     Indication: B-CELL LYMPHOMA
     Dosage: FOR 4 WEEKS
     Route: 042
     Dates: start: 201902
  5. RITUXIMAB. [Suspect]
     Active Substance: RITUXIMAB
     Route: 058
  6. RITUXIMAB. [Suspect]
     Active Substance: RITUXIMAB
     Route: 058
  7. SOLU-MEDROL [Concomitant]
     Active Substance: METHYLPREDNISOLONE SODIUM SUCCINATE
     Indication: B-CELL LYMPHOMA
     Dosage: 4 CYCLES
     Route: 042
     Dates: start: 20171207, end: 20180306
  8. RITUXIMAB. [Suspect]
     Active Substance: RITUXIMAB
     Dosage: 4 CYCLES
     Route: 042
     Dates: start: 20171207, end: 20180306
  9. DOXORUBICIN [Concomitant]
     Active Substance: DOXORUBICIN
     Indication: B-CELL LYMPHOMA
     Dosage: 8 CYCLES
     Route: 042
     Dates: start: 201610, end: 201705
  10. CYTOSAR [Concomitant]
     Active Substance: CYTARABINE
     Indication: AUTOLOGOUS HAEMATOPOIETIC STEM CELL TRANSPLANT
  11. MESNA. [Concomitant]
     Active Substance: MESNA
     Indication: B-CELL LYMPHOMA
     Dosage: 5 DOSES TOTAL
     Route: 042
     Dates: start: 20180904
  12. RITUXIMAB. [Suspect]
     Active Substance: RITUXIMAB
     Indication: B-CELL LYMPHOMA
     Dosage: 8 CYCLES
     Route: 042
     Dates: start: 201610, end: 201703
  13. PREDNISONE. [Concomitant]
     Active Substance: PREDNISONE
     Indication: B-CELL LYMPHOMA
     Dosage: 8 CYCLES
     Route: 042
     Dates: start: 201610, end: 201705
  14. MELPHALAN. [Concomitant]
     Active Substance: MELPHALAN
     Indication: B-CELL LYMPHOMA
     Route: 042
     Dates: start: 20180907
  15. CYCLOPHOSPHAMIDE. [Concomitant]
     Active Substance: CYCLOPHOSPHAMIDE
     Indication: B-CELL LYMPHOMA
     Dosage: 8 CYCLES
     Route: 042
     Dates: start: 201610, end: 201705
  16. CYCLOPHOSPHAMIDE. [Concomitant]
     Active Substance: CYCLOPHOSPHAMIDE
     Indication: AUTOLOGOUS HAEMATOPOIETIC STEM CELL TRANSPLANT
     Route: 042
     Dates: start: 20180905
  17. CYTARABINE. [Concomitant]
     Active Substance: CYTARABINE
     Indication: B-CELL LYMPHOMA
     Dosage: 4 CYCLES
     Route: 042
     Dates: start: 20171207, end: 20180306
  18. CISPLATIN. [Concomitant]
     Active Substance: CISPLATIN
     Indication: B-CELL LYMPHOMA
     Dosage: 4 CYCLES
     Route: 042
     Dates: start: 20171207, end: 20180306
  19. CYTOSAR [Concomitant]
     Active Substance: CYTARABINE
     Indication: B-CELL LYMPHOMA
     Route: 042
     Dates: start: 20180901
  20. MELPHALAN. [Concomitant]
     Active Substance: MELPHALAN
     Indication: AUTOLOGOUS HAEMATOPOIETIC STEM CELL TRANSPLANT
  21. MESNA. [Concomitant]
     Active Substance: MESNA
     Indication: AUTOLOGOUS HAEMATOPOIETIC STEM CELL TRANSPLANT
  22. VINCRISTINE [Concomitant]
     Active Substance: VINCRISTINE
     Indication: B-CELL LYMPHOMA
     Dosage: 8 CYCLES
     Route: 042
     Dates: start: 201610, end: 201705
  23. RITUXIMAB. [Suspect]
     Active Substance: RITUXIMAB
     Indication: B-CELL LYMPHOMA
     Route: 058
     Dates: start: 201705, end: 201710

REACTIONS (2)
  - Therapy non-responder [Unknown]
  - Death [Fatal]
